FAERS Safety Report 6956417-4 (Version None)
Quarter: 2010Q3

REPORT INFORMATION
  Report Type: 
  Country: None (occurrence: None)
  Receive Date: 20100830
  Receipt Date: 20100825
  Transmission Date: 20110219
  Serious: Yes (Life-Threatening)
  Sender: FDA-Public Use
  Company Number: B0670347A

PATIENT
  Sex: Female

DRUGS (13)
  1. AUGMENTIN '125' [Suspect]
     Indication: ABDOMINAL OPERATION
     Route: 042
     Dates: start: 20100806, end: 20100806
  2. MIDAZOLAM HCL [Concomitant]
  3. PROPOFOL [Concomitant]
  4. FENTANYL CITRATE [Concomitant]
  5. ROCURONIUM BROMIDE [Concomitant]
  6. ALLOPURINOL [Concomitant]
     Indication: GOUT
     Route: 048
  7. AMLODIPINE [Concomitant]
     Indication: HYPERTENSION
     Route: 048
  8. ENALAPRIL MALEATE [Concomitant]
     Indication: HYPERTENSION
     Route: 048
  9. BENDROFLUAZIDE [Concomitant]
     Indication: HYPERTENSION
     Route: 048
  10. ISOSORBIDE MONONITRATE [Concomitant]
     Route: 048
  11. ACETAMINOPHEN [Concomitant]
     Route: 048
  12. ASPIRIN [Concomitant]
     Dosage: 75MG PER DAY
     Route: 048
  13. SIMVASTATIN [Concomitant]

REACTIONS (3)
  - BRONCHOSPASM [None]
  - ELECTROCARDIOGRAM T WAVE INVERSION [None]
  - HYPOTENSION [None]
